FAERS Safety Report 8306728-5 (Version None)
Quarter: 2012Q1

REPORT INFORMATION
  Report Type: 
  Country: None (occurrence: None)
  Receive Date: 20120327
  Receipt Date: 20090911
  Transmission Date: 20120608
  Serious: Yes (Other)
  Sender: FDA-Public Use
  Company Number: PHEH2009US10572

PATIENT
  Sex: Male

DRUGS (8)
  1. FUROSEMIDE [Concomitant]
  2. ASPIRIN [Concomitant]
  3. ALLOPURINOL [Concomitant]
  4. VITAMIN D [Concomitant]
  5. IRON (IRON) [Concomitant]
  6. ALBUTEROL [Concomitant]
  7. SYMBICORT [Concomitant]
  8. GLEEVEC [Suspect]
     Indication: CHRONIC MYELOID LEUKAEMIA

REACTIONS (2)
  - RASH [None]
  - ATRIAL FIBRILLATION [None]
